FAERS Safety Report 22112131 (Version 1)
Quarter: 2023Q1

REPORT INFORMATION
  Report Type: Spontaneous
  Country: US (occurrence: US)
  Receive Date: 20230318
  Receipt Date: 20230318
  Transmission Date: 20230417
  Serious: No
  Sender: FDA-Public Use
  Company Number: US-AMGEN-USASP2023044485

PATIENT

DRUGS (1)
  1. REPATHA [Suspect]
     Active Substance: EVOLOCUMAB
     Indication: Product used for unknown indication
     Dosage: UNK
     Route: 065

REACTIONS (7)
  - Myalgia [Unknown]
  - Arthralgia [Unknown]
  - Immune-mediated adverse reaction [Unknown]
  - Visual impairment [Unknown]
  - Feeling abnormal [Unknown]
  - Asthenia [Unknown]
  - Mobility decreased [Unknown]
